FAERS Safety Report 14333700 (Version 1)
Quarter: 2017Q4

REPORT INFORMATION
  Report Type: Report from Study
  Country: GB (occurrence: GB)
  Receive Date: 20171228
  Receipt Date: 20171228
  Transmission Date: 20180321
  Serious: Yes (Hospitalization, Other)
  Sender: FDA-Public Use
  Company Number: GB-B.I. PHARMACEUTICALS,INC./RIDGEFIELD-2015-BI-48856II

PATIENT
  Age: 67 Year
  Sex: Male
  Weight: 82.2 kg

DRUGS (9)
  1. SPIRULINA [Concomitant]
     Active Substance: SPIRULINA
     Indication: ROUTINE HEALTH MAINTENANCE
     Route: 048
  2. BLINDED BIBF 1120 [Suspect]
     Active Substance: NINTEDANIB
     Route: 048
     Dates: start: 20150813, end: 20151029
  3. CISPLATIN. [Suspect]
     Active Substance: CISPLATIN
     Route: 042
     Dates: start: 20150813, end: 20150924
  4. OMEPRAZOLE. [Concomitant]
     Active Substance: OMEPRAZOLE
     Indication: DYSPEPSIA
     Route: 048
     Dates: start: 20150415
  5. GEMCITABINE [Suspect]
     Active Substance: GEMCITABINE\GEMCITABINE HYDROCHLORIDE
     Route: 042
     Dates: start: 20150813, end: 20151015
  6. CISPLATIN. [Suspect]
     Active Substance: CISPLATIN
     Indication: BLADDER CANCER
     Dosage: DOSE: 70MG/M2
     Route: 042
     Dates: start: 20150723
  7. BLINDED BIBF 1120 [Suspect]
     Active Substance: NINTEDANIB
     Indication: BLADDER CANCER
     Route: 048
     Dates: start: 20150723
  8. GEMCITABINE [Suspect]
     Active Substance: GEMCITABINE\GEMCITABINE HYDROCHLORIDE
     Indication: BLADDER CANCER
     Dosage: DOSE: 1000MG/M2
     Route: 042
     Dates: start: 20150723
  9. METOCLOPRAMIDE. [Concomitant]
     Active Substance: METOCLOPRAMIDE
     Indication: NAUSEA
     Route: 048
     Dates: start: 20150723

REACTIONS (2)
  - Pulmonary embolism [Recovered/Resolved]
  - Back pain [Recovered/Resolved]

NARRATIVE: CASE EVENT DATE: 20150830
